FAERS Safety Report 25851253 (Version 1)
Quarter: 2025Q3

REPORT INFORMATION
  Report Type: Spontaneous
  Country: KW (occurrence: KW)
  Receive Date: 20250926
  Receipt Date: 20250926
  Transmission Date: 20251021
  Serious: Yes (Disabling, Other)
  Sender: ACCORD
  Company Number: KW-MLMSERVICE-20250908-PI638438-00117-1

PATIENT
  Age: 16 Year
  Sex: Male

DRUGS (5)
  1. METHOTREXATE [Suspect]
     Active Substance: METHOTREXATE
     Indication: B-cell type acute leukaemia
     Dosage: ON DAYS 1, 8 AND 28
     Route: 037
     Dates: start: 20231109, end: 20231207
  2. DAUNORUBICIN [Suspect]
     Active Substance: DAUNORUBICIN
     Indication: B-cell type acute leukaemia
     Dosage: WEEKLY: 25 MG/M2/DOSE EQUAL TO 46.5 MG/DOSE
     Dates: start: 20231109, end: 20231207
  3. VINCRISTINE [Suspect]
     Active Substance: VINCRISTINE
     Indication: B-cell type acute leukaemia
     Dosage: WEEKLY: 1.5 MG/M2/DOSE EQUAL TO 2 MG/DOSE
     Dates: start: 20231109, end: 20231207
  4. DEXAMETHASONE [Suspect]
     Active Substance: DEXAMETHASONE
     Indication: B-cell type acute leukaemia
     Dosage: DAILY: 6 MG/M2/DAY EQUAL TO 11 MG/DAY
     Route: 048
     Dates: start: 20231109, end: 20231207
  5. MERCAPTOPURINE [Suspect]
     Active Substance: MERCAPTOPURINE
     Indication: B-cell type acute leukaemia
     Dosage: DAILY: 75 MG/M2/DAY EQUAL TO 110 MG/DAY
     Route: 048
     Dates: start: 20231109, end: 20231207

REACTIONS (1)
  - Neuropathy peripheral [Recovered/Resolved]

NARRATIVE: CASE EVENT DATE: 20231203
